FAERS Safety Report 4878931-8 (Version None)
Quarter: 2006Q1

REPORT INFORMATION
  Report Type: 
  Country: None (occurrence: None)
  Receive Date: 20060112
  Receipt Date: 20060104
  Transmission Date: 20060701
  Serious: Yes (Hospitalization)
  Sender: FDA-Public Use
  Company Number: 2006UW00187

PATIENT
  Age: 42 Year
  Sex: Male
  Weight: 92 kg

DRUGS (2)
  1. ATACAND HCT [Suspect]
     Indication: HYPERTENSION
     Dosage: 32/12.5
     Route: 048
  2. ASPIRIN [Concomitant]

REACTIONS (1)
  - MIGRAINE [None]
